FAERS Safety Report 13182351 (Version 1)
Quarter: 2017Q1

REPORT INFORMATION
  Report Type: Spontaneous
  Country: US (occurrence: US)
  Receive Date: 20170203
  Receipt Date: 20170203
  Transmission Date: 20170428
  Serious: Yes (Other)
  Sender: FDA-Public Use
  Company Number: US-TEVA-735685USA

PATIENT
  Sex: Female

DRUGS (2)
  1. PROVIGIL [Suspect]
     Active Substance: MODAFINIL
     Indication: NARCOLEPSY
     Route: 065
  2. DEXTROAMPHETAMINE. [Concomitant]
     Active Substance: DEXTROAMPHETAMINE

REACTIONS (5)
  - Drug ineffective [Unknown]
  - Narcolepsy [Unknown]
  - Cataplexy [Not Recovered/Not Resolved]
  - Product substitution issue [Unknown]
  - Motor dysfunction [Not Recovered/Not Resolved]
